FAERS Safety Report 7680392-0 (Version None)
Quarter: 2011Q3

REPORT INFORMATION
  Report Type: 
  Country: None (occurrence: None)
  Receive Date: 20110812
  Receipt Date: 20110805
  Transmission Date: 20111222
  Serious: Yes (Other)
  Sender: FDA-Public Use
  Company Number: US-US-EMD SERONO, INC.-7042475

PATIENT
  Sex: Female

DRUGS (6)
  1. PROZAC [Concomitant]
  2. VITAMIN B [Concomitant]
  3. BACLOFEN [Concomitant]
  4. REBIF [Suspect]
     Indication: MULTIPLE SCLEROSIS
     Route: 058
     Dates: start: 20050512
  5. TOPIRAMATE [Concomitant]
  6. TYLENOL-500 [Concomitant]

REACTIONS (6)
  - CENTRAL NERVOUS SYSTEM LESION [None]
  - INFLUENZA LIKE ILLNESS [None]
  - INJECTION SITE ERYTHEMA [None]
  - UTERINE LEIOMYOMA [None]
  - DECREASED APPETITE [None]
  - PRURITUS [None]
